FAERS Safety Report 20853755 (Version 1)
Quarter: 2022Q2

REPORT INFORMATION
  Report Type: Spontaneous
  Country: CA (occurrence: CA)
  Receive Date: 20220520
  Receipt Date: 20220520
  Transmission Date: 20220721
  Serious: Yes (Hospitalization, Other)
  Sender: FDA-Public Use
  Company Number: CA-BRISTOL-MYERS SQUIBB COMPANY-2022-041027

PATIENT
  Age: 78 Year
  Sex: Female

DRUGS (1)
  1. ELIQUIS [Suspect]
     Active Substance: APIXABAN
     Indication: Product used for unknown indication
     Route: 048

REACTIONS (7)
  - Anaemia [Unknown]
  - Dizziness [Unknown]
  - Haemoglobin abnormal [Unknown]
  - Haemorrhoids [Unknown]
  - Lower gastrointestinal haemorrhage [Unknown]
  - Rectal haemorrhage [Unknown]
  - Transfusion [Unknown]
